FAERS Safety Report 10265419 (Version 1)
Quarter: 2014Q2

REPORT INFORMATION
  Report Type: Spontaneous
  Country: GB (occurrence: GB)
  Receive Date: 20140627
  Receipt Date: 20140627
  Transmission Date: 20141212
  Serious: Yes (Other)
  Sender: FDA-Public Use
  Company Number: GB-TEVA-490594ISR

PATIENT
  Age: 62 Year
  Sex: Female
  Weight: 77.56 kg

DRUGS (6)
  1. TRIMETHOPRIM [Suspect]
     Indication: URINARY TRACT INFECTION
     Route: 048
     Dates: start: 20140609, end: 20140610
  2. ASPIRIN [Concomitant]
  3. LANSOPRAZOLE [Concomitant]
  4. LISINOPRIL [Concomitant]
  5. PRAVASTATIN [Concomitant]
  6. THYROXINE [Concomitant]

REACTIONS (7)
  - Pallor [Recovered/Resolved]
  - Nausea [Recovering/Resolving]
  - Blister [Recovered/Resolved]
  - Malaise [Recovered/Resolved]
  - Rash erythematous [Recovered/Resolved]
  - Burning sensation [Recovered/Resolved]
  - Feeling abnormal [Unknown]
